FAERS Safety Report 5752662-4 (Version None)
Quarter: 2008Q2

REPORT INFORMATION
  Report Type: 
  Country: None (occurrence: None)
  Receive Date: 20080529
  Receipt Date: 20080520
  Transmission Date: 20081010
  Serious: No
  Sender: FDA-Public Use
  Company Number: US-ROCHE-561220

PATIENT
  Sex: Female

DRUGS (2)
  1. ISOTRETINOIN (NON-ROCHE/NON-COMPARATOR) [Suspect]
     Indication: DRUG USE FOR UNKNOWN INDICATION
     Dosage: CLARAVIS - 20 MG AND 30 MG CAPSULES DISPENSED 25 JANUARY 2008, AND 10 MG CAPSULES ON 14 MARCH 2008.
     Route: 065
     Dates: start: 20080125, end: 20080418
  2. ORAL CONTRACEPTIVE NOS [Concomitant]

REACTIONS (2)
  - NO ADVERSE EVENT [None]
  - PREGNANCY [None]
